FAERS Safety Report 8779600 (Version 1)
Quarter: 2012Q4

REPORT INFORMATION
  Report Type: 
  Country: CO (occurrence: CO)
  Receive Date: 20120912
  Receipt Date: 20120912
  Transmission Date: 20130627
  Serious: Yes (Disabling, Other)
  Sender: FDA-Public Use
  Company Number: CO-AMGEN-COLSP2012057263

PATIENT
  Age: 80 Year
  Sex: Female

DRUGS (7)
  1. ENBREL [Suspect]
     Indication: RHEUMATOID ARTHRITIS
     Dosage: 50 mg, weekly
     Dates: start: 2006
  2. ENBREL [Suspect]
     Dosage: 50 mg, weekly
     Route: 058
     Dates: start: 2007
  3. PREDNISOLONE [Concomitant]
     Indication: OSTEOARTHRITIS
     Dosage: 5 mg, 1x/day
     Route: 048
     Dates: start: 2002
  4. PREDNISOLONE [Concomitant]
     Dosage: 1.5 mg per day
     Route: 048
     Dates: start: 2006
  5. ENALAPRIL [Concomitant]
     Indication: HYPERTENSION
     Dosage: 20 mg, 1x/day
     Route: 048
     Dates: start: 2007
  6. METHOTREXATE [Concomitant]
     Indication: RHEUMATOID ARTHRITIS
     Dosage: UNK
  7. ARAVA [Concomitant]
     Indication: RHEUMATOID ARTHRITIS
     Dosage: UNK UNK, UNK

REACTIONS (7)
  - Gait disturbance [Not Recovered/Not Resolved]
  - Fall [Not Recovered/Not Resolved]
  - Spinal disorder [Not Recovered/Not Resolved]
  - Osteoarthritis [Not Recovered/Not Resolved]
  - Arthritis [Not Recovered/Not Resolved]
  - Spinal pain [Not Recovered/Not Resolved]
  - Mobility decreased [Not Recovered/Not Resolved]
